FAERS Safety Report 19996230 (Version 2)
Quarter: 2021Q4

REPORT INFORMATION
  Report Type: Report from Study
  Country: US (occurrence: US)
  Receive Date: 20211026
  Receipt Date: 20211203
  Transmission Date: 20220303
  Serious: No
  Sender: FDA-Public Use
  Company Number: US-ACADIA PHARMACEUTICALS INC.-ACA-2021-PIM-003511

PATIENT
  Sex: Male

DRUGS (5)
  1. NUPLAZID [Suspect]
     Active Substance: PIMAVANSERIN TARTRATE
     Indication: Parkinson^s disease
     Dosage: 34 MILLIGRAM, QD
     Route: 048
     Dates: start: 20210618
  2. CALCIUM [Suspect]
     Active Substance: CALCIUM
     Dosage: 1200 MILLIGRAM
  3. CALCIUM [Suspect]
     Active Substance: CALCIUM
     Dosage: 600 MILLIGRAM
  4. VITAMIN D NOS [Suspect]
     Active Substance: VITAMIN D NOS
     Dosage: 1000 UNITS
  5. VITAMIN D NOS [Suspect]
     Active Substance: VITAMIN D NOS
     Dosage: 300 UNITS

REACTIONS (2)
  - Flank pain [Unknown]
  - Hallucination [Recovering/Resolving]
